FAERS Safety Report 19708508 (Version 1)
Quarter: 2021Q3

REPORT INFORMATION
  Report Type: Spontaneous
  Country: CN (occurrence: CN)
  Receive Date: 20210817
  Receipt Date: 20210817
  Transmission Date: 20211014
  Serious: Yes (Other)
  Sender: FDA-Public Use
  Company Number: CN-GLAXOSMITHKLINE-CN2021APC170726

PATIENT
  Age: 23 Year
  Sex: Female
  Weight: 69 kg

DRUGS (4)
  1. LAMOTRIGINE. [Suspect]
     Active Substance: LAMOTRIGINE
     Indication: AFFECTIVE DISORDER
     Dosage: 25 MG, QD
     Route: 048
     Dates: start: 20210716
  2. QUETIAPINE FUMARATE TABLET [Suspect]
     Active Substance: QUETIAPINE FUMARATE
     Indication: AFFECTIVE DISORDER
     Dosage: 0.100 G, BID
     Route: 048
     Dates: start: 20210716
  3. QUETIAPINE FUMARATE TABLET [Suspect]
     Active Substance: QUETIAPINE FUMARATE
     Dosage: 100 MG, QD
     Dates: end: 20210803
  4. LAMOTRIGINE. [Suspect]
     Active Substance: LAMOTRIGINE
     Dosage: 50 MG, QD
     Route: 048
     Dates: end: 20210730

REACTIONS (4)
  - Condition aggravated [Recovering/Resolving]
  - Aspartate aminotransferase abnormal [Recovering/Resolving]
  - Hepatic function abnormal [Recovering/Resolving]
  - Alanine aminotransferase abnormal [Recovering/Resolving]

NARRATIVE: CASE EVENT DATE: 20210730
